FAERS Safety Report 8919935 (Version 1)
Quarter: 2012Q4

REPORT INFORMATION
  Report Type: 
  Country: US (occurrence: US)
  Receive Date: 20121121
  Receipt Date: 20121121
  Transmission Date: 20130627
  Serious: No
  Sender: FDA-Public Use
  Company Number: US-BAYER-2012-121419

PATIENT
  Sex: Female

DRUGS (1)
  1. ALEVE GELCAP [Suspect]
     Indication: HEADACHE
     Dosage: 3 DF, UNK

REACTIONS (3)
  - Drug ineffective [None]
  - Hypersensitivity [None]
  - Back pain [None]
